FAERS Safety Report 7864850-1 (Version None)
Quarter: 2011Q4

REPORT INFORMATION
  Report Type: 
  Country: None (occurrence: None)
  Receive Date: 20111028
  Receipt Date: 20100903
  Transmission Date: 20120403
  Serious: No
  Sender: FDA-Public Use
  Company Number: US-GLAXOSMITHKLINE-A0879562A

PATIENT
  Age: 76 Year
  Sex: Female

DRUGS (2)
  1. ATROVENT [Concomitant]
  2. ADVAIR DISKUS 100/50 [Suspect]
     Indication: BRONCHOSPASM
     Route: 055
     Dates: start: 20100902

REACTIONS (3)
  - DRUG ADMINISTRATION ERROR [None]
  - COUGH [None]
  - WHEEZING [None]
